FAERS Safety Report 7811593-6 (Version None)
Quarter: 2011Q4

REPORT INFORMATION
  Report Type: 
  Country: None (occurrence: None)
  Receive Date: 20111013
  Receipt Date: 20111003
  Transmission Date: 20120403
  Serious: Yes (Hospitalization)
  Sender: FDA-Public Use
  Company Number: US-UCBSA-042777

PATIENT
  Age: 49 Year
  Sex: Female
  Weight: 73 kg

DRUGS (23)
  1. CIMZIA [Suspect]
     Route: 058
     Dates: start: 20110414, end: 20110609
  2. CIMZIA [Suspect]
     Route: 058
     Dates: start: 20091109, end: 20091207
  3. BENADRYL [Concomitant]
     Indication: RASH
     Dosage: 25-50 MG (25 MG 1-2) EVERY 4 HOURS
     Route: 048
     Dates: start: 20100101
  4. METHOTREXATE [Concomitant]
     Dates: start: 20080703, end: 20090304
  5. BENADRYL [Concomitant]
     Indication: MOTION SICKNESS
     Dosage: 25-50 MG (25 MG 1-2) EVERY 4 HOURS
     Route: 048
     Dates: start: 20100101
  6. ACETAMINOPHEN [Concomitant]
     Dosage: 500-1000 MG
     Route: 048
  7. CIMZIA [Suspect]
     Indication: CROHN'S DISEASE
     Route: 058
     Dates: start: 20110704
  8. ALBUTEROL [Concomitant]
     Indication: DYSPNOEA
     Dosage: 90 MCG/ACT. 2 PUFFS
     Dates: start: 20100101
  9. AMITRIPTYLINE HCL [Concomitant]
     Indication: DEPRESSION
     Route: 048
     Dates: start: 20090101
  10. METHOTREXATE [Concomitant]
     Indication: CROHN'S DISEASE
     Dates: start: 20110503
  11. CIMZIA [Suspect]
     Route: 058
     Dates: start: 20100509, end: 20110218
  12. ALLEGRA [Concomitant]
     Indication: SEASONAL ALLERGY
     Dosage: 2 SL BID
     Route: 060
     Dates: start: 20100217
  13. METHOTREXATE [Concomitant]
     Dates: start: 20000101, end: 20020101
  14. ACETAMINOPHEN [Concomitant]
     Indication: PAIN
     Dosage: 100 MG
     Route: 048
  15. CIMZIA [Suspect]
     Route: 058
     Dates: start: 20100104, end: 20100303
  16. ACETAMINOPHEN [Concomitant]
     Route: 048
     Dates: start: 20110309, end: 20110313
  17. ALTAPLASE [Concomitant]
     Dosage: 2 MG
     Route: 042
     Dates: start: 20100427
  18. CEFEPIME [Concomitant]
     Indication: CATHETER SITE INFECTION
     Dosage: 2 GM
     Route: 042
     Dates: start: 20110921
  19. CIMZIA [Suspect]
     Route: 058
     Dates: start: 20100419, end: 20100101
  20. METHOTREXATE [Concomitant]
     Dates: start: 20090501, end: 20110309
  21. METHOTREXATE [Concomitant]
     Dates: start: 20071001, end: 20080101
  22. LOPERAMIDE HCL [Concomitant]
     Indication: CROHN'S DISEASE
  23. ACETAMINOPHEN [Concomitant]
     Dosage: 1000 MG
     Route: 048

REACTIONS (1)
  - PYREXIA [None]
